FAERS Safety Report 17394465 (Version 3)
Quarter: 2020Q1

REPORT INFORMATION
  Report Type: Spontaneous
  Country: BE (occurrence: BE)
  Receive Date: 20200210
  Receipt Date: 20200305
  Transmission Date: 20200409
  Serious: Yes (Hospitalization, Disabling, Other)
  Sender: FDA-Public Use
  Company Number: BE-009507513-2002BEL002420

PATIENT
  Sex: Male
  Weight: 69 kg

DRUGS (10)
  1. ASAFLOW [Concomitant]
     Active Substance: ASPIRIN
     Dosage: UNK
  2. BURINEX [Concomitant]
     Active Substance: BUMETANIDE
     Dosage: UNK
  3. KEYTRUDA [Suspect]
     Active Substance: PEMBROLIZUMAB
     Indication: LUNG ADENOCARCINOMA
     Dosage: 200 MILLIGRAM, Q3W (COMBINATION THERAPY)
     Dates: start: 201811
  4. CRESTOR [Concomitant]
     Active Substance: ROSUVASTATIN CALCIUM
     Dosage: UNK
  5. FOLAVIT [Concomitant]
     Active Substance: FOLIC ACID
     Dosage: UNK
  6. ALDACTONE [Concomitant]
     Active Substance: SPIRONOLACTONE
     Dosage: UNK
  7. PANTOCID (PANTOPRAZOLE) [Concomitant]
     Active Substance: PANTOPRAZOLE
     Dosage: UNK
  8. KEYTRUDA [Suspect]
     Active Substance: PEMBROLIZUMAB
     Dosage: 200 MILLIGRAM, Q3W (MONO THERAPY)
     Dates: end: 20200113
  9. NOBITEN [Concomitant]
     Active Substance: NEBIVOLOL
     Dosage: UNK
  10. ALIMTA [Suspect]
     Active Substance: PEMETREXED DISODIUM
     Indication: LUNG ADENOCARCINOMA
     Dosage: Q3W
     Dates: start: 201811, end: 20191226

REACTIONS (1)
  - Hepatic cirrhosis [Not Recovered/Not Resolved]

NARRATIVE: CASE EVENT DATE: 202001
